FAERS Safety Report 20688333 (Version 2)
Quarter: 2023Q2

REPORT INFORMATION
  Report Type: Spontaneous
  Country: CN (occurrence: CN)
  Receive Date: 20220408
  Receipt Date: 20230421
  Transmission Date: 20230721
  Serious: Yes (Hospitalization)
  Sender: FDA-Public Use
  Company Number: CN-SA-2022SA111893

PATIENT
  Age: 57 Year
  Sex: Male

DRUGS (14)
  1. LIXISENATIDE [Interacting]
     Active Substance: LIXISENATIDE
     Indication: Type 2 diabetes mellitus
     Dosage: 20 UG, QD (INJECTION)
     Route: 058
     Dates: start: 20201102, end: 20201102
  2. LIXISENATIDE [Interacting]
     Active Substance: LIXISENATIDE
     Dosage: REDUCED TO 10 UG, QD (INJECTION)
     Route: 058
     Dates: start: 20201103, end: 20201103
  3. IRBESARTAN [Interacting]
     Active Substance: IRBESARTAN
     Indication: Hypertension
     Dosage: 150 MG, QD
     Route: 048
     Dates: start: 20201030
  4. BISOPROLOL FUMARATE [Interacting]
     Active Substance: BISOPROLOL FUMARATE
     Indication: Hypertension
     Dosage: 5 MG, QD
     Route: 048
  5. GLIMEPIRIDE [Concomitant]
     Active Substance: GLIMEPIRIDE
     Indication: Type 2 diabetes mellitus
     Dosage: 2 MG, QD
     Route: 048
     Dates: start: 2018
  6. INSULIN ASPART [Concomitant]
     Active Substance: INSULIN ASPART
     Indication: Type 2 diabetes mellitus
     Dosage: BASAL DOSE 1 U/H, 8 U BEFORE 3 MEALS
     Route: 058
     Dates: start: 20201030, end: 20201102
  7. METHYLCOBALAMIN [Concomitant]
     Active Substance: METHYLCOBALAMIN
     Indication: Diabetic neuropathy
     Dosage: 1 MG, QD
     Route: 042
     Dates: start: 20201030
  8. ALPROSTADIL [Concomitant]
     Active Substance: ALPROSTADIL
     Dosage: 10 UG, QD (10 ?G INTO 0.9% SODIUM CHLORIDE INJECTION 10 ML)
     Route: 042
     Dates: start: 20201030
  9. SODIUM CHLORIDE [Concomitant]
     Active Substance: SODIUM CHLORIDE
     Dosage: 10 ML, QD (10 ?G INTO 0.9% SODIUM CHLORIDE INJECTION 10 ML)
     Route: 042
     Dates: start: 20201030
  10. METFORMIN [Concomitant]
     Active Substance: METFORMIN HYDROCHLORIDE
     Indication: Type 2 diabetes mellitus
     Dosage: 0.5 G, TID
     Route: 048
     Dates: start: 20201102
  11. METFORMIN [Concomitant]
     Active Substance: METFORMIN HYDROCHLORIDE
     Dosage: 0.5 G, BID
     Route: 048
     Dates: start: 2018
  12. ACARBOSE [Concomitant]
     Active Substance: ACARBOSE
     Indication: Type 2 diabetes mellitus
     Dosage: 0.1 G, TID
     Route: 048
     Dates: start: 20201102
  13. VALSARTAN [Concomitant]
     Active Substance: VALSARTAN
     Indication: Hypertension
     Dosage: 80 MG, QD
     Route: 048
  14. SITAGLIPTIN [Concomitant]
     Active Substance: SITAGLIPTIN
     Indication: Type 2 diabetes mellitus
     Dosage: 0.1 G, QD
     Route: 048
     Dates: start: 2018

REACTIONS (5)
  - Blood pressure increased [Recovered/Resolved]
  - Nausea [Recovered/Resolved]
  - Palpitations [Recovered/Resolved]
  - Flushing [Recovered/Resolved]
  - Drug interaction [Unknown]

NARRATIVE: CASE EVENT DATE: 20201102
